FAERS Safety Report 7901443-1 (Version None)
Quarter: 2011Q4

REPORT INFORMATION
  Report Type: 
  Country: None (occurrence: None)
  Receive Date: 20111108
  Receipt Date: 20111101
  Transmission Date: 20120403
  Serious: Yes (Hospitalization)
  Sender: FDA-Public Use
  Company Number: US-SANOFI-AVENTIS-2011SA072118

PATIENT
  Sex: Male

DRUGS (8)
  1. BEVACIZUMAB [Suspect]
     Dates: start: 20111018, end: 20111018
  2. FLUOROURACIL [Suspect]
     Dates: start: 20111018, end: 20111018
  3. ELOXATIN [Suspect]
     Dates: start: 20111018, end: 20111018
  4. FLUOROURACIL [Suspect]
     Dates: start: 20111005, end: 20111005
  5. BEVACIZUMAB [Suspect]
     Dates: start: 20111005, end: 20111005
  6. ELOXATIN [Suspect]
     Dates: start: 20111005, end: 20111005
  7. LEUCOVORIN CALCIUM [Suspect]
     Dates: start: 20111005, end: 20111005
  8. LEUCOVORIN CALCIUM [Suspect]
     Dates: start: 20111018, end: 20111018

REACTIONS (3)
  - WEIGHT DECREASED [None]
  - OESOPHAGEAL SPASM [None]
  - INFECTION [None]
